FAERS Safety Report 7072092-5 (Version None)
Quarter: 2010Q4

REPORT INFORMATION
  Report Type: 
  Country: None (occurrence: None)
  Receive Date: 20101029
  Receipt Date: 20101021
  Transmission Date: 20110411
  Serious: Yes (Other)
  Sender: FDA-Public Use
  Company Number: AT-NOVOPROD-314814

PATIENT
  Age: 47 Year
  Sex: Female
  Weight: 64 kg

DRUGS (4)
  1. NORDITROPIN NORDIFLEX [Suspect]
     Indication: PITUITARY TUMOUR REMOVAL
     Dosage: UNK
     Dates: start: 20080415, end: 20100303
  2. FEMOSTON [Concomitant]
  3. COMBITHYREX [Concomitant]
  4. HYDROCORTISONE [Concomitant]

REACTIONS (1)
  - MALIGNANT MELANOMA [None]
